FAERS Safety Report 8992399 (Version 1)
Quarter: 2012Q4

REPORT INFORMATION
  Report Type: 
  Country: CH (occurrence: CH)
  Receive Date: 20121231
  Receipt Date: 20121231
  Transmission Date: 20130627
  Serious: Yes (Other)
  Sender: FDA-Public Use
  Company Number: CH-JNJFOC-20121211086

PATIENT

DRUGS (9)
  1. DOXORUBICIN [Suspect]
     Indication: HODGKIN^S DISEASE
     Route: 042
  2. BLEOMYCIN [Suspect]
     Indication: HODGKIN^S DISEASE
     Route: 065
  3. VINBLASTINE [Suspect]
     Indication: HODGKIN^S DISEASE
     Route: 065
  4. DACARBAZINE [Suspect]
     Indication: HODGKIN^S DISEASE
     Route: 065
  5. ETOPOSIDE [Suspect]
     Indication: HODGKIN^S DISEASE
     Route: 065
  6. CYCLOPHOSPHAMIDE [Suspect]
     Indication: HODGKIN^S DISEASE
     Route: 065
  7. VINCRISTINE [Suspect]
     Indication: HODGKIN^S DISEASE
     Route: 065
  8. PROCARBAZINE [Suspect]
     Indication: HODGKIN^S DISEASE
     Route: 065
  9. PREDNISONE [Suspect]
     Indication: HODGKIN^S DISEASE
     Route: 065

REACTIONS (2)
  - Renal failure acute [Unknown]
  - Hodgkin^s disease recurrent [Unknown]
